FAERS Safety Report 9982083 (Version 1)
Quarter: 2014Q1

REPORT INFORMATION
  Report Type: Report from Study
  Country: US (occurrence: US)
  Receive Date: 20140307
  Receipt Date: 20140307
  Transmission Date: 20141002
  Serious: No
  Sender: FDA-Public Use
  Company Number: US-ABBVIE-13P-163-1179102-00

PATIENT
  Age: 32 Year
  Sex: Female

DRUGS (6)
  1. HUMIRA [Suspect]
     Indication: COLITIS ULCERATIVE
     Dates: start: 20131017
  2. PENTASA [Concomitant]
     Indication: PRODUCT USED FOR UNKNOWN INDICATION
     Dates: end: 201312
  3. PREDNISONE [Concomitant]
     Indication: PRODUCT USED FOR UNKNOWN INDICATION
  4. PREDNISONE [Concomitant]
  5. PREDNISONE [Concomitant]
  6. PREDNISONE [Concomitant]
     Dates: start: 20131128

REACTIONS (5)
  - Wrong technique in drug usage process [Unknown]
  - Foot fracture [Recovering/Resolving]
  - Fall [Recovering/Resolving]
  - Diarrhoea [Unknown]
  - Injection site haemorrhage [Recovered/Resolved]
